FAERS Safety Report 5077340-9 (Version None)
Quarter: 2006Q3

REPORT INFORMATION
  Report Type: 
  Country: None (occurrence: None)
  Receive Date: 20060810
  Receipt Date: 20060127
  Transmission Date: 20061208
  Serious: No
  Sender: FDA-Public Use
  Company Number: US-GLAXOSMITHKLINE-A0591297A

PATIENT
  Age: 30 Year
  Sex: Female

DRUGS (2)
  1. PAROXETINE HCL [Suspect]
     Indication: PANIC DISORDER
     Route: 048
     Dates: start: 20050301, end: 20050401
  2. PAXIL CR [Suspect]
     Indication: PANIC DISORDER
     Route: 048
     Dates: start: 20040301, end: 20050301

REACTIONS (2)
  - DRUG INEFFECTIVE [None]
  - INFLUENZA [None]
